FAERS Safety Report 5910632-7 (Version None)
Quarter: 2008Q4

REPORT INFORMATION
  Report Type: 
  Country: None (occurrence: None)
  Receive Date: 20081007
  Receipt Date: 20081002
  Transmission Date: 20090506
  Serious: Yes (Hospitalization)
  Sender: FDA-Public Use
  Company Number: DE-ASTRAZENECA-2008PK02123

PATIENT
  Age: 22828 Day
  Sex: Female
  Weight: 68.6 kg

DRUGS (1)
  1. SEROQUEL [Suspect]
     Indication: SCHIZOID PERSONALITY DISORDER
     Dosage: 200 MG IN THE MORNING PLUS 300 MG IN THE EVENING
     Route: 048

REACTIONS (1)
  - HERPES ZOSTER [None]
